FAERS Safety Report 5314501-5 (Version None)
Quarter: 2007Q2

REPORT INFORMATION
  Report Type: 
  Country: None (occurrence: None)
  Receive Date: 20070427
  Receipt Date: 20070413
  Transmission Date: 20071010
  Serious: Yes (Hospitalization)
  Sender: FDA-Public Use
  Company Number: 012928

PATIENT
  Age: 46 Year
  Sex: Male

DRUGS (3)
  1. PRIALT [Suspect]
     Indication: BACK PAIN
     Dosage: SEE IMAGE
     Route: 037
     Dates: start: 20070101, end: 20070101
  2. PRIALT [Suspect]
     Indication: BACK PAIN
     Dosage: SEE IMAGE
     Route: 037
     Dates: start: 20070101, end: 20070101
  3. PRIALT [Suspect]
     Indication: BACK PAIN
     Dosage: SEE IMAGE
     Route: 037
     Dates: start: 20070408, end: 20070411

REACTIONS (7)
  - ABNORMAL BEHAVIOUR [None]
  - DELUSION [None]
  - DYSPHASIA [None]
  - HALLUCINATION, AUDITORY [None]
  - PSYCHIATRIC SYMPTOM [None]
  - SCHIZOPHRENIA, PARANOID TYPE [None]
  - SPEECH DISORDER [None]
